FAERS Safety Report 16949755 (Version 1)
Quarter: 2019Q4

REPORT INFORMATION
  Report Type: Spontaneous
  Country: CA (occurrence: CA)
  Receive Date: 20191023
  Receipt Date: 20191023
  Transmission Date: 20200122
  Serious: Yes (Other)
  Sender: FDA-Public Use
  Company Number: CA-TEVA-2019-CA-1124674

PATIENT
  Age: 3 Year
  Sex: Female
  Weight: 13 kg

DRUGS (9)
  1. DOXORUBICIN LIPOSOMAL [Concomitant]
     Active Substance: DOXORUBICIN
  2. VINCRISTINE SULFATE. [Suspect]
     Active Substance: VINCRISTINE SULFATE
     Route: 042
  3. MERCAPTOPURINE. [Concomitant]
     Active Substance: MERCAPTOPURINE
  4. CYTARABINE INJECTION [Concomitant]
     Active Substance: CYTARABINE
  5. PREDNISONE. [Concomitant]
     Active Substance: PREDNISONE
  6. DEXAMETHASONE. [Concomitant]
     Active Substance: DEXAMETHASONE
  7. METHOTREXATE. [Concomitant]
     Active Substance: METHOTREXATE
  8. METHYLPREDNISOLONE NOS [Concomitant]
     Active Substance: METHYLPREDNISOLONE
  9. PEG-L-ASPARAGINASE [Concomitant]
     Active Substance: PEGASPARGASE

REACTIONS (15)
  - Ligament sprain [Unknown]
  - Neuropathy peripheral [Unknown]
  - Physiotherapy [Unknown]
  - Arthralgia [Unknown]
  - Orthosis user [Unknown]
  - Mobility decreased [Unknown]
  - Back pain [Unknown]
  - Gait disturbance [Unknown]
  - Emergency care [Unknown]
  - Fall [Unknown]
  - Gait inability [Unknown]
  - Pain in jaw [Unknown]
  - Ergotherapy [Unknown]
  - Muscular weakness [Unknown]
  - Pain in extremity [Unknown]
